FAERS Safety Report 10038133 (Version 3)
Quarter: 2014Q2

REPORT INFORMATION
  Report Type: Spontaneous
  Country: US (occurrence: US)
  Receive Date: 20140326
  Receipt Date: 20140617
  Transmission Date: 20141212
  Serious: Yes (Other)
  Sender: FDA-Public Use
  Company Number: US-BAYER-2014-041872

PATIENT
  Age: 37 Year
  Sex: Female

DRUGS (2)
  1. MIRENA [Suspect]
     Indication: MENORRHAGIA
     Dosage: 20 MCG/24HR, CONT
     Dates: start: 20140206, end: 20140313
  2. MIRENA [Suspect]
     Indication: PAIN

REACTIONS (3)
  - Genital haemorrhage [Recovered/Resolved]
  - Abdominal pain [Recovered/Resolved]
  - Patient-device incompatibility [Recovered/Resolved]
